FAERS Safety Report 9554601 (Version 1)
Quarter: 2013Q3

REPORT INFORMATION
  Report Type: Spontaneous
  Country: ES (occurrence: ES)
  Receive Date: 20130925
  Receipt Date: 20130925
  Transmission Date: 20140515
  Serious: Yes (Death, Other)
  Sender: FDA-Public Use
  Company Number: PHHY2013ES105152

PATIENT
  Age: 48 Year
  Sex: Male

DRUGS (2)
  1. ZOLEDRONATE [Suspect]
     Indication: KERATINISING SQUAMOUS CELL CARCINOMA OF NASOPHARYNX
     Dosage: UNK UKN, UNK
  2. GEMCITABINE [Suspect]
     Dosage: 800 MG/M2, EVERY 14 DAYS

REACTIONS (4)
  - Death [Fatal]
  - Keratinising squamous cell carcinoma of nasopharynx [Unknown]
  - Malignant neoplasm progression [Unknown]
  - Back pain [Unknown]
